FAERS Safety Report 25585427 (Version 1)
Quarter: 2025Q3

REPORT INFORMATION
  Report Type: Spontaneous
  Country: US (occurrence: None)
  Receive Date: 20250718
  Receipt Date: 20250718
  Transmission Date: 20251020
  Serious: Yes (Hospitalization)
  Sender: FDA-CTU
  Company Number: None

PATIENT
  Age: 44 Year
  Sex: Male
  Weight: 136.1 kg

DRUGS (1)
  1. TECARTUS [Suspect]
     Active Substance: BREXUCABTAGENE AUTOLEUCEL

REACTIONS (12)
  - Cytokine release syndrome [None]
  - Serum ferritin increased [None]
  - Neurotoxicity [None]
  - Somnolence [None]
  - Confusional state [None]
  - Memory impairment [None]
  - Personality change [None]
  - Loss of personal independence in daily activities [None]
  - Aphasia [None]
  - Communication disorder [None]
  - Immune effector cell-associated neurotoxicity syndrome [None]
  - Encephalopathy [None]

NARRATIVE: CASE EVENT DATE: 20250614
